FAERS Safety Report 21576445 (Version 1)
Quarter: 2022Q4

REPORT INFORMATION
  Report Type: Spontaneous
  Country: US (occurrence: US)
  Receive Date: 20221110
  Receipt Date: 20221110
  Transmission Date: 20230112
  Serious: No
  Sender: FDA-Public Use
  Company Number: US-APOTEX-2022AP009877

PATIENT
  Sex: Male

DRUGS (1)
  1. FENTANYL TRANSDERMAL SYSTEM [Suspect]
     Active Substance: FENTANYL
     Indication: Product used for unknown indication
     Dosage: 1 DOSAGE FORM (1/72 HOURS)
     Route: 065
     Dates: start: 202206

REACTIONS (2)
  - Drug screen negative [Unknown]
  - Product quality issue [Unknown]

NARRATIVE: CASE EVENT DATE: 20220601
